FAERS Safety Report 21334830 (Version 2)
Quarter: 2022Q3

REPORT INFORMATION
  Report Type: Spontaneous
  Country: JP (occurrence: JP)
  Receive Date: 20220914
  Receipt Date: 20220921
  Transmission Date: 20221027
  Serious: Yes (Other)
  Sender: FDA-Public Use
  Company Number: JP-BAYER-2022A125094

PATIENT
  Age: 61 Year
  Sex: Female

DRUGS (4)
  1. IOPAMIRON [Suspect]
     Active Substance: IOPAMIDOL
     Indication: Scan with contrast
     Dosage: UNK
     Route: 042
  2. IOMEPROL [Suspect]
     Active Substance: IOMEPROL
     Indication: Scan with contrast
     Dosage: 200 ML
     Route: 042
  3. IOHEXOL [Suspect]
     Active Substance: IOHEXOL
     Indication: Retroperitoneal haemorrhage
     Dosage: 300 ML
     Route: 042
  4. IOHEXOL [Suspect]
     Active Substance: IOHEXOL
     Indication: Scan with contrast

REACTIONS (3)
  - Cholecystitis acute [Recovering/Resolving]
  - Cholangitis [Recovering/Resolving]
  - Pancreatitis acute [Recovering/Resolving]
